FAERS Safety Report 8550896 (Version 4)
Quarter: 2013Q1

REPORT INFORMATION
  Report Type: Report from Study
  Country: FR (occurrence: FR)
  Receive Date: 20120508
  Receipt Date: 20130226
  Transmission Date: 20140127
  Serious: Yes (Hospitalization)
  Sender: FDA-Public Use
  Company Number: PHHO2012FR006883

PATIENT
  Sex: 0

DRUGS (8)
  1. NEORAL [Suspect]
     Indication: RENAL TRANSPLANT
     Dosage: 125 MG, BID
     Route: 048
     Dates: start: 20111221, end: 20120430
  2. NEORAL [Suspect]
     Dosage: UNK
     Route: 048
     Dates: start: 20120501
  3. MYFORTIC [Suspect]
     Indication: RENAL TRANSPLANT
     Dosage: 360 MG, TID
     Route: 048
     Dates: start: 20111221, end: 20120430
  4. ROVALCYTE [Suspect]
     Indication: PROPHYLAXIS
     Dosage: 450 MG, BID
     Route: 048
     Dates: start: 20111229, end: 20120430
  5. BACTRIM [Suspect]
     Indication: PROPHYLAXIS
     Dosage: 600 MG, QD
     Route: 048
     Dates: start: 20111224, end: 20120430
  6. AMLOR [Concomitant]
     Indication: HYPERTENSION
     Dosage: 5 MG, UNK
     Route: 048
     Dates: start: 20111231
  7. INIPOMP [Concomitant]
     Indication: PROPHYLAXIS
     Dosage: 20 MG, UNK
     Route: 048
     Dates: start: 20120218
  8. NEBILOX [Concomitant]
     Indication: HYPERTENSION
     Dosage: UNK
     Route: 048
     Dates: start: 20111221

REACTIONS (2)
  - Agranulocytosis [Recovered/Resolved]
  - Pyrexia [Recovered/Resolved]
